FAERS Safety Report 8846699 (Version 2)
Quarter: 2014Q3

REPORT INFORMATION
  Report Type: Report from Study
  Country: US (occurrence: US)
  Receive Date: 20121017
  Receipt Date: 20140908
  Transmission Date: 20150326
  Serious: Yes (Death, Other)
  Sender: FDA-Public Use
  Company Number: US-ROCHE-1132291

PATIENT
  Sex: Female

DRUGS (1)
  1. XELODA [Suspect]
     Active Substance: CAPECITABINE
     Indication: AUTOIMMUNE HAEMOLYTIC ANAEMIA
     Dosage: 14 DAYS ON AND 7 DAYS OFF, 3 TABLETS PER DOSE
     Route: 048

REACTIONS (2)
  - Death [Fatal]
  - Breast cancer [Unknown]
